FAERS Safety Report 8884249 (Version 1)
Quarter: 2012Q4

REPORT INFORMATION
  Report Type: 
  Country: US (occurrence: US)
  Receive Date: 20121102
  Receipt Date: 20121102
  Transmission Date: 20130627
  Serious: No
  Sender: FDA-Public Use
  Company Number: US-ASTRAZENECA-2012SE11645

PATIENT
  Age: 74 Year
  Sex: Female
  Weight: 57.2 kg

DRUGS (16)
  1. CRESTOR [Suspect]
     Route: 048
  2. CRESTOR [Suspect]
     Route: 048
  3. CRESTOR [Suspect]
     Route: 048
  4. LISINOPRIL [Suspect]
     Route: 048
  5. ACETAMINOPHEN [Concomitant]
  6. ASCORBIC ACID [Concomitant]
  7. CITALOPRAM HYDROBROMIDE [Concomitant]
  8. DIGOXIN [Concomitant]
  9. DILTIAZEM HCL COATED BEADS [Concomitant]
  10. FERROUS SULPHATE [Concomitant]
  11. FLUTICASONE SALMETEROL [Concomitant]
  12. IPRATROPIUM BROMIDE [Concomitant]
  13. LORAZEPAM [Concomitant]
  14. METFORMIN [Concomitant]
  15. POLYETHYLENE GLYCOL [Concomitant]
  16. PREDNISONE [Concomitant]

REACTIONS (3)
  - Hyperlipidaemia [Unknown]
  - Acute sinusitis [Unknown]
  - Drug prescribing error [Unknown]
